FAERS Safety Report 16525518 (Version 4)
Quarter: 2022Q2

REPORT INFORMATION
  Report Type: Other
  Country: CA (occurrence: CA)
  Receive Date: 20190702
  Receipt Date: 20220504
  Transmission Date: 20220721
  Serious: Yes (Other)
  Sender: FDA-Public Use
  Company Number: CA-002147023-PHHY2019CA084878

PATIENT
  Age: 8 Year
  Sex: Female

DRUGS (14)
  1. XOLAIR [Suspect]
     Active Substance: OMALIZUMAB
     Indication: Asthma
     Dosage: 300 MG EVERY 4 WEEKS
     Route: 058
     Dates: start: 20190325
  2. XOLAIR [Suspect]
     Active Substance: OMALIZUMAB
     Dosage: 225 MG, BIW
     Route: 058
     Dates: start: 20190605
  3. XOLAIR [Suspect]
     Active Substance: OMALIZUMAB
     Dosage: 225 MG, BIW
     Route: 058
     Dates: start: 20190926
  4. XOLAIR [Suspect]
     Active Substance: OMALIZUMAB
     Dosage: 225 MG, BIW
     Route: 058
     Dates: start: 20190605
  5. XOLAIR [Suspect]
     Active Substance: OMALIZUMAB
     Dosage: 225 MG
     Route: 065
  6. XOLAIR [Suspect]
     Active Substance: OMALIZUMAB
     Dosage: 300 MG, EVERY 4 WEEKS
     Route: 058
     Dates: start: 20220322
  7. VENTOLIN [Concomitant]
     Active Substance: ALBUTEROL SULFATE
     Indication: Asthma
     Dosage: 2 DF, PRN
     Route: 055
     Dates: start: 2011
  8. ADVAIR HFA [Concomitant]
     Active Substance: FLUTICASONE PROPIONATE\SALMETEROL XINAFOATE
     Indication: Asthma
     Dosage: 1 D (125 UG, FLUTICASONE PROPIONATE, 25 UG SALMETEROL XINAFOATE)F, BID
     Route: 055
     Dates: start: 2016
  9. ALVESCO [Concomitant]
     Active Substance: CICLESONIDE
     Indication: Asthma
     Dosage: 1 DF, QD
     Route: 055
     Dates: start: 2016
  10. SINGULAIR [Concomitant]
     Active Substance: MONTELUKAST SODIUM
     Indication: Asthma
     Dosage: 1 DF, QD
     Route: 048
     Dates: start: 2013
  11. NASONEX [Concomitant]
     Active Substance: MOMETASONE FUROATE
     Indication: Hypersensitivity
     Dosage: 2 DF, QD
     Route: 045
     Dates: start: 2012
  12. RUPATADINE FUMARATE [Concomitant]
     Active Substance: RUPATADINE FUMARATE
     Indication: Hypersensitivity
     Dosage: 1 DF, QD
     Route: 048
     Dates: start: 2016
  13. PATANOL [Concomitant]
     Active Substance: OLOPATADINE HYDROCHLORIDE
     Indication: Hypersensitivity
     Dosage: 2 DF, PRN
     Route: 047
     Dates: start: 2015
  14. CORTICOSTEROID NOS [Concomitant]
     Active Substance: CORTICOSTEROID NOS

REACTIONS (12)
  - Interstitial lung disease [Unknown]
  - Mite allergy [Unknown]
  - Total lung capacity decreased [Not Recovered/Not Resolved]
  - Nasal congestion [Unknown]
  - Dyspnoea [Unknown]
  - Wheezing [Unknown]
  - Inappropriate schedule of product administration [Unknown]
  - Adrenal insufficiency [Unknown]
  - Body mass index decreased [Unknown]
  - Gastrointestinal disorder [Unknown]
  - Blood growth hormone decreased [Recovered/Resolved]
  - Vomiting [Unknown]

NARRATIVE: CASE EVENT DATE: 20190329
